FAERS Safety Report 6179159-4 (Version None)
Quarter: 2009Q2

REPORT INFORMATION
  Report Type: 
  Country: None (occurrence: None)
  Receive Date: 20090505
  Receipt Date: 20090420
  Transmission Date: 20091009
  Serious: Yes (Other)
  Sender: FDA-Public Use
  Company Number: DE-PURDUE-DEU_2009_0005217

PATIENT
  Age: 45 Year
  Sex: Female
  Weight: 45 kg

DRUGS (7)
  1. PALLADONE [Suspect]
     Indication: CANCER PAIN
     Dosage: 36 MG, TID
     Route: 048
     Dates: start: 20090401
  2. LYRICA [Concomitant]
  3. PALLADON INJEKT [Suspect]
     Indication: CANCER PAIN
     Route: 042
     Dates: start: 20090401
  4. NOVALGIN                           /00039501/ [Concomitant]
  5. LORAZEPAM [Concomitant]
  6. ARCOXIA [Concomitant]
  7. CLONIDINE [Concomitant]

REACTIONS (7)
  - BLADDER CATHETERISATION [None]
  - CONSTIPATION [None]
  - DIZZINESS [None]
  - GAIT DISTURBANCE [None]
  - HYPERHIDROSIS [None]
  - PAIN [None]
  - SOMNOLENCE [None]
